FAERS Safety Report 7941058-2 (Version None)
Quarter: 2011Q4

REPORT INFORMATION
  Report Type: 
  Country: None (occurrence: None)
  Receive Date: 20111128
  Receipt Date: 20111124
  Transmission Date: 20120403
  Serious: Yes (Hospitalization)
  Sender: FDA-Public Use
  Company Number: DE-PFIZER INC-2006040084

PATIENT
  Age: 58 Year
  Sex: Male
  Weight: 75 kg

DRUGS (6)
  1. NORVASC [Concomitant]
     Route: 048
     Dates: start: 20060227
  2. PREDNISOLONE [Concomitant]
     Route: 048
     Dates: start: 20060308
  3. PANTOPRAZOLE SODIUM [Concomitant]
     Route: 048
     Dates: start: 20060208
  4. METOPROLOL TARTRATE [Concomitant]
     Route: 048
     Dates: start: 19940101
  5. SUNITINIB MALATE [Suspect]
     Indication: METASTATIC RENAL CELL CARCINOMA
     Dosage: 50 MG, 1X/DAY CYCLIC
     Route: 048
     Dates: start: 20060209, end: 20060308
  6. GASTROSIL [Concomitant]
     Route: 048
     Dates: start: 20060209

REACTIONS (1)
  - VISION BLURRED [None]
